FAERS Safety Report 7754059-4 (Version None)
Quarter: 2011Q3

REPORT INFORMATION
  Report Type: 
  Country: None (occurrence: None)
  Receive Date: 20110913
  Receipt Date: 20110830
  Transmission Date: 20111222
  Serious: Yes (Hospitalization)
  Sender: FDA-Public Use
  Company Number: 2011MA012744

PATIENT
  Age: 72 Year
  Sex: Male

DRUGS (3)
  1. CLOZAPINE [Suspect]
     Indication: PSYCHOTIC DISORDER
     Dosage: 25 MG;QD
  2. PROPRANOLOL [Concomitant]
  3. CARBIDOPA AND LEVODOPA [Suspect]
     Indication: PARKINSON'S DISEASE
     Dosage: 330 MG;QD

REACTIONS (14)
  - HALLUCINATIONS, MIXED [None]
  - NO THERAPEUTIC RESPONSE [None]
  - POSTURE ABNORMAL [None]
  - MICROGRAPHIA [None]
  - PSYCHOTIC DISORDER [None]
  - SOMNOLENCE [None]
  - PARKINSONIAN GAIT [None]
  - PERSECUTORY DELUSION [None]
  - INSOMNIA [None]
  - MUSCLE RIGIDITY [None]
  - MASKED FACIES [None]
  - DROOLING [None]
  - TREMOR [None]
  - BRADYKINESIA [None]
